FAERS Safety Report 18250885 (Version 3)
Quarter: 2020Q3

REPORT INFORMATION
  Report Type: Spontaneous
  Country: EG (occurrence: EG)
  Receive Date: 20200909
  Receipt Date: 20200928
  Transmission Date: 20201103
  Serious: Yes (Other)
  Sender: FDA-Public Use
  Company Number: EG-NOVOPROD-751040

PATIENT
  Age: 792 Month
  Sex: Male

DRUGS (4)
  1. NEUROVIT [CYANOCOBALAMIN;IBUPROFEN;PYRIDOXINE HYDROCHLORIDE;THIAMINE H [Concomitant]
     Indication: NEUROPATHY PERIPHERAL
     Dosage: 2 TAB./DAY, STARTED 10 YEARS AGO
     Route: 048
  2. OCUGARD [Concomitant]
     Indication: EYE DISORDER
     Dosage: 1 CAP./DAY, 10 YEARS AGO
     Route: 048
  3. RUTA C [Concomitant]
     Indication: NEUROPATHY PERIPHERAL
     Dosage: 2 TAB./DAY, STARTED BEFORE 2010
     Route: 048
  4. MIXTARD 30 HM PENFILL [Suspect]
     Active Substance: INSULIN HUMAN
     Indication: DIABETES MELLITUS
     Dosage: 55 IU, QD (30 IU MORNING AND 25 IU NIGHT)
     Route: 058
     Dates: start: 1998

REACTIONS (2)
  - Cataract operation [Recovered/Resolved]
  - Laser therapy [Recovered/Resolved]
